FAERS Safety Report 7884741-X (Version None)
Quarter: 2011Q4

REPORT INFORMATION
  Report Type: 
  Country: None (occurrence: None)
  Receive Date: 20111102
  Receipt Date: 20111024
  Transmission Date: 20120403
  Serious: Yes (Hospitalization, Other)
  Sender: FDA-Public Use
  Company Number: US-JNJFOC-20111010881

PATIENT
  Sex: Female
  Weight: 74.39 kg

DRUGS (9)
  1. CRESTOR [Concomitant]
     Indication: BLOOD CHOLESTEROL INCREASED
     Dates: start: 20070101
  2. FENOFIBRATE [Concomitant]
     Indication: DIABETES MELLITUS
     Dates: start: 20100101
  3. GLIPIZIDE [Concomitant]
     Indication: DIABETES MELLITUS
     Dates: start: 20100101
  4. METFORMIN HCL [Concomitant]
     Indication: DIABETES MELLITUS
     Dates: start: 20100101
  5. METHOTREXATE [Concomitant]
     Indication: ARTHRITIS
     Dates: start: 20110101
  6. REMICADE [Suspect]
     Indication: ARTHRITIS
     Route: 042
     Dates: start: 20110101, end: 20110401
  7. METOPROLOL TARTRATE [Concomitant]
     Indication: HYPERTENSION
  8. HYDROCHLOROTHIAZIDE [Concomitant]
     Indication: FLUID RETENTION
  9. LEVOTHYROXINE SODIUM [Concomitant]
     Indication: THYROID DISORDER

REACTIONS (4)
  - BACTERIAL INFECTION [None]
  - CYSTITIS [None]
  - TOOTH ABSCESS [None]
  - HEAD AND NECK CANCER [None]
